FAERS Safety Report 5017788-1 (Version None)
Quarter: 2006Q2

REPORT INFORMATION
  Report Type: 
  Country: None (occurrence: None)
  Receive Date: 20060531
  Receipt Date: 20060516
  Transmission Date: 20061013
  Serious: Yes (Other)
  Sender: FDA-Public Use
  Company Number: 2005165795

PATIENT
  Age: 75 Year
  Sex: Female

DRUGS (6)
  1. TIKOSYN [Suspect]
     Indication: ILL-DEFINED DISORDER
     Dates: start: 20050329
  2. MACROBID [Suspect]
     Indication: ILL-DEFINED DISORDER
     Dosage: 2 IN 1 D
  3. COUMADIN [Concomitant]
  4. TORADOL [Concomitant]
  5. PROMETHAZINE [Concomitant]
  6. DILAUDID [Concomitant]

REACTIONS (4)
  - CARDIO-RESPIRATORY ARREST [None]
  - NEPHROLITHIASIS [None]
  - OBSTRUCTIVE UROPATHY [None]
  - UROSEPSIS [None]
